FAERS Safety Report 14539032 (Version 1)
Quarter: 2018Q1

REPORT INFORMATION
  Report Type: Spontaneous
  Country: JP (occurrence: JP)
  Receive Date: 20180216
  Receipt Date: 20180216
  Transmission Date: 20180509
  Serious: Yes (Death)
  Sender: FDA-Public Use
  Company Number: JP-VIFOR (INTERNATIONAL) INC.-VIT-2018-01489

PATIENT
  Age: 97 Year
  Sex: Female

DRUGS (1)
  1. MIRCERA [Suspect]
     Active Substance: METHOXY POLYETHYLENE GLYCOL-EPOETIN BETA
     Indication: NEPHROGENIC ANAEMIA
     Route: 058

REACTIONS (4)
  - Pneumonia aspiration [Fatal]
  - Marasmus [Fatal]
  - Respiratory disorder [Fatal]
  - Asthenia [Fatal]

NARRATIVE: CASE EVENT DATE: 20180117
